FAERS Safety Report 7893714-2 (Version None)
Quarter: 2011Q4

REPORT INFORMATION
  Report Type: 
  Country: None (occurrence: None)
  Receive Date: 20111104
  Receipt Date: 20111027
  Transmission Date: 20120403
  Serious: Yes (Death)
  Sender: FDA-Public Use
  Company Number: JP-AMGEN-JPNCT2011037513

PATIENT
  Age: 64 Year
  Sex: Male
  Weight: 70 kg

DRUGS (16)
  1. FLUOROURACIL [Concomitant]
     Route: 040
     Dates: start: 20110203, end: 20110526
  2. JUZENTAIHOTO [Concomitant]
     Dosage: UNK
     Route: 048
  3. DIOVAN [Concomitant]
     Dosage: UNK
     Route: 048
  4. UNSPECIFIED HERBAL [Concomitant]
     Dosage: UNK
     Route: 048
  5. FLUOROURACIL [Concomitant]
     Route: 041
     Dates: start: 20110203, end: 20110526
  6. FLIVAS [Concomitant]
     Indication: BENIGN PROSTATIC HYPERPLASIA
     Dosage: UNK
     Route: 048
  7. OXALIPLATIN [Suspect]
     Indication: COLORECTAL CANCER
     Route: 041
     Dates: start: 20110203, end: 20110526
  8. IRINOTECAN HCL [Concomitant]
     Indication: COLORECTAL CANCER
     Dosage: 120 MG, Q2WK
     Route: 041
     Dates: start: 20100909, end: 20110120
  9. FLUOROURACIL [Concomitant]
     Dosage: 750 MG, Q2WK
     Route: 041
     Dates: start: 20100909, end: 20110120
  10. FLUOROURACIL [Concomitant]
     Indication: COLORECTAL CANCER
     Dosage: 500 MG, Q2WK
     Route: 040
     Dates: start: 20100909, end: 20110120
  11. LEVOLEUCOVORIN CALCIUM [Concomitant]
     Indication: COLORECTAL CANCER
     Dosage: 125 MG, Q2WK
     Route: 041
     Dates: start: 20100909, end: 20110220
  12. ANTIHISTAMINES [Concomitant]
     Indication: PROPHYLAXIS
     Dosage: UNK
     Route: 065
  13. PANITUMUMAB [Suspect]
     Indication: COLORECTAL CANCER
     Dosage: 6 MG/KG, Q2WK
     Route: 041
     Dates: start: 20100909, end: 20110526
  14. LEVOLEUCOVORIN CALCIUM [Concomitant]
     Route: 041
     Dates: start: 20110203, end: 20110526
  15. CORTICOSTEROIDS [Concomitant]
     Indication: PROPHYLAXIS
     Dosage: UNK
     Route: 065
  16. EMEND [Concomitant]
     Dosage: UNK
     Route: 048
     Dates: end: 20110526

REACTIONS (4)
  - STOMATITIS [None]
  - INTERSTITIAL LUNG DISEASE [None]
  - DERMATITIS ACNEIFORM [None]
  - DRY SKIN [None]
